FAERS Safety Report 5919177-1 (Version None)
Quarter: 2008Q4

REPORT INFORMATION
  Report Type: 
  Country: None (occurrence: None)
  Receive Date: 20081015
  Receipt Date: 20081009
  Transmission Date: 20090506
  Serious: Yes (Other)
  Sender: FDA-Public Use
  Company Number: US-MERCK-0810USA01759

PATIENT
  Age: 6 Year
  Sex: Male

DRUGS (1)
  1. SINGULAIR [Suspect]
     Indication: ASTHMA
     Route: 048

REACTIONS (5)
  - ANXIETY [None]
  - DEPRESSION [None]
  - HOMICIDAL IDEATION [None]
  - MOOD SWINGS [None]
  - SUICIDAL IDEATION [None]
